FAERS Safety Report 7090810-7 (Version None)
Quarter: 2010Q4

REPORT INFORMATION
  Report Type: 
  Country: None (occurrence: None)
  Receive Date: 20101012
  Receipt Date: 20091102
  Transmission Date: 20110411
  Serious: Yes (Hospitalization)
  Sender: FDA-Public Use
  Company Number: 1000009507

PATIENT
  Sex: Female

DRUGS (9)
  1. LEXAPRO [Suspect]
     Indication: DEPRESSION
     Dosage: SEE IMAGE
     Route: 048
     Dates: start: 20040501, end: 20060101
  2. LEXAPRO [Suspect]
     Indication: DEPRESSION
     Dosage: SEE IMAGE
     Route: 048
     Dates: start: 20060101, end: 20061009
  3. LEXAPRO [Suspect]
     Indication: DEPRESSION
     Dosage: SEE IMAGE
     Route: 048
     Dates: start: 20061010, end: 20061016
  4. LEXAPRO [Suspect]
     Indication: DEPRESSION
     Dosage: SEE IMAGE
     Route: 048
     Dates: start: 20061016, end: 20081101
  5. LAMICTAL [Suspect]
     Indication: BIPOLAR II DISORDER
     Dosage: 100 MG EVERY MORNING (100 MG, 1 IN 1 D), ORAL; 200 MG QHS (200 MG, 1 IN 1 D), ORAL
     Route: 048
     Dates: start: 20060101, end: 20061011
  6. SEROQUEL [Suspect]
     Indication: BIPOLAR II DISORDER
     Dosage: (1 IN 1 D), ORAL
     Route: 048
     Dates: start: 20061010, end: 20061010
  7. WELLBUTRIN [Suspect]
     Indication: BIPOLAR II DISORDER
     Dosage: 150 MG (150 MG, 1 IN 1 D), ORAL
     Route: 048
     Dates: start: 20061012, end: 20061012
  8. RISPERDAL [Suspect]
     Indication: BIPOLAR II DISORDER
     Dosage: 1 MG (0.5 MG, 2 IN 1 D), ORAL
     Route: 048
     Dates: start: 20061016
  9. ZYRTEC-D 12 HOUR [Concomitant]

REACTIONS (8)
  - AGITATION [None]
  - AKATHISIA [None]
  - CONFUSIONAL STATE [None]
  - DIZZINESS [None]
  - HYPOMANIA [None]
  - OVERDOSE [None]
  - SUICIDAL IDEATION [None]
  - SWELLING FACE [None]
